FAERS Safety Report 8001496-9 (Version None)
Quarter: 2011Q4

REPORT INFORMATION
  Report Type: 
  Country: None (occurrence: None)
  Receive Date: 20111222
  Receipt Date: 20111214
  Transmission Date: 20120403
  Serious: Yes (Hospitalization)
  Sender: FDA-Public Use
  Company Number: US-JNJFOC-20111105329

PATIENT
  Sex: Male
  Weight: 37.2 kg

DRUGS (12)
  1. INFLIXIMAB, RECOMBINANT [Suspect]
     Indication: INFLAMMATORY BOWEL DISEASE
     Route: 042
     Dates: start: 20100823, end: 20110820
  2. ANTIBIOTICS FOR IBD [Concomitant]
     Indication: INFLAMMATORY BOWEL DISEASE
  3. ATIVAN [Concomitant]
  4. ACETAMINOPHEN [Concomitant]
  5. CIMZIA [Concomitant]
     Dates: start: 20111028
  6. CELEXA [Concomitant]
  7. ZOFRAN [Concomitant]
  8. PRILOSEC [Concomitant]
  9. CIMZIA [Concomitant]
  10. PREDNISONE [Concomitant]
  11. MULTI-VITAMINS [Concomitant]
  12. VITAMIN D [Concomitant]

REACTIONS (1)
  - SMALL INTESTINAL OBSTRUCTION [None]
